FAERS Safety Report 5927172-1 (Version None)
Quarter: 2008Q4

REPORT INFORMATION
  Report Type: 
  Country: None (occurrence: None)
  Receive Date: 20081022
  Receipt Date: 20081013
  Transmission Date: 20090506
  Serious: Yes (Other)
  Sender: FDA-Public Use
  Company Number: US-PFIZER INC-2008043748

PATIENT
  Sex: Female
  Weight: 116.6 kg

DRUGS (1)
  1. BEXTRA [Suspect]
     Indication: BACK PAIN
     Dates: start: 20040130

REACTIONS (3)
  - FURUNCLE [None]
  - PYREXIA [None]
  - RASH [None]
